FAERS Safety Report 23434766 (Version 1)
Quarter: 2024Q1

REPORT INFORMATION
  Report Type: Spontaneous
  Country: US (occurrence: US)
  Receive Date: 20240123
  Receipt Date: 20240123
  Transmission Date: 20240410
  Serious: No
  Sender: FDA-Public Use
  Company Number: US-NOVOPROD-1147048

PATIENT
  Sex: Female

DRUGS (1)
  1. WEGOVY [Suspect]
     Active Substance: SEMAGLUTIDE
     Indication: Weight control
     Dosage: 1.7MG
     Route: 058

REACTIONS (3)
  - Injection site inflammation [Not Recovered/Not Resolved]
  - Injection site discharge [Not Recovered/Not Resolved]
  - Injection site haemorrhage [Not Recovered/Not Resolved]
